FAERS Safety Report 14222115 (Version 6)
Quarter: 2018Q2

REPORT INFORMATION
  Report Type: Report from Study
  Country: US (occurrence: US)
  Receive Date: 20171124
  Receipt Date: 20180427
  Transmission Date: 20180711
  Serious: Yes (Hospitalization, Other)
  Sender: FDA-Public Use
  Company Number: US-BRISTOL-MYERS SQUIBB COMPANY-BMS-2017-104814

PATIENT
  Age: 35 Year
  Sex: Male
  Weight: 106.6 kg

DRUGS (2)
  1. NIVOLUMAB [Suspect]
     Active Substance: NIVOLUMAB
     Indication: HODGKIN^S DISEASE
     Route: 065
  2. ABVD [Suspect]
     Active Substance: BLEOMYCIN\DACARBAZINE\DOXORUBICIN\VINBLASTINE
     Indication: HODGKIN^S DISEASE
     Dosage: UNK
     Route: 065
     Dates: start: 20170809, end: 20180124

REACTIONS (22)
  - Constipation [Recovered/Resolved]
  - Tachycardia [Recovered/Resolved]
  - Pain in extremity [Recovered/Resolved]
  - Insomnia [Recovered/Resolved]
  - Hypertension [Recovered/Resolved]
  - Arthralgia [Recovered/Resolved]
  - Neutropenia [Recovered/Resolved]
  - White blood cell count decreased [Not Recovered/Not Resolved]
  - Herpes zoster [Recovered/Resolved]
  - Hyperglycaemia [Recovered/Resolved]
  - Lymphocyte count decreased [Recovered/Resolved]
  - Hyponatraemia [Recovered/Resolved]
  - Weight increased [Recovered/Resolved]
  - Paranasal sinus hypersecretion [Recovered/Resolved]
  - Febrile neutropenia [Recovered/Resolved]
  - Anaemia [Unknown]
  - Nausea [Recovered/Resolved]
  - Depression [Recovered/Resolved]
  - Mucosal inflammation [Recovered/Resolved]
  - Oral herpes [Recovered/Resolved]
  - Anxiety [Recovered/Resolved]
  - Fatigue [Recovered/Resolved]

NARRATIVE: CASE EVENT DATE: 20170823
